FAERS Safety Report 8504841-0 (Version None)
Quarter: 2012Q3

REPORT INFORMATION
  Report Type: 
  Country: None (occurrence: None)
  Receive Date: 20120712
  Receipt Date: 20120705
  Transmission Date: 20120928
  Serious: Yes (Life-Threatening, Hospitalization)
  Sender: FDA-Public Use
  Company Number: US-009507513-1207USA001384

PATIENT

DRUGS (1)
  1. INVANZ [Suspect]
     Indication: INFECTION
     Dosage: UNK
     Route: 042
     Dates: end: 20120614

REACTIONS (1)
  - GRAND MAL CONVULSION [None]
